FAERS Safety Report 9338746 (Version 6)
Quarter: 2013Q3

REPORT INFORMATION
  Report Type: Spontaneous
  Country: JP (occurrence: JP)
  Receive Date: 20130610
  Receipt Date: 20130814
  Transmission Date: 20140515
  Serious: Yes (Death, Life-Threatening, Hospitalization)
  Sender: FDA-Public Use
  Company Number: JP-PFIZER INC-2013171863

PATIENT
  Age: 59 Year
  Sex: Male
  Weight: 48 kg

DRUGS (1)
  1. SUTENT [Suspect]
     Indication: RENAL CELL CARCINOMA
     Dosage: 25 MG, 1X/DAY
     Route: 048
     Dates: start: 20120328, end: 20121126

REACTIONS (4)
  - Disease progression [Fatal]
  - Renal cell carcinoma [Fatal]
  - Interstitial lung disease [Recovering/Resolving]
  - Hypothyroidism [Recovering/Resolving]
